FAERS Safety Report 7623498-4 (Version None)
Quarter: 2011Q3

REPORT INFORMATION
  Report Type: 
  Country: None (occurrence: None)
  Receive Date: 20110720
  Receipt Date: 20110714
  Transmission Date: 20111222
  Serious: Yes (Hospitalization)
  Sender: FDA-Public Use
  Company Number: US-B.I. PHARMACEUTICALS,INC./RIDGEFIELD-2011-BP-12371BP

PATIENT
  Sex: Female

DRUGS (7)
  1. NEURONTIN [Concomitant]
     Indication: ANXIETY
     Dosage: 400 MG
     Route: 048
     Dates: start: 19960101
  2. RETIN-A [Concomitant]
     Indication: DRY SKIN
     Dates: start: 20080101
  3. PRADAXA [Suspect]
     Indication: ATRIAL FIBRILLATION
     Dosage: 300 MG
     Route: 048
     Dates: start: 20110307
  4. XANAX [Concomitant]
     Indication: ANXIETY
     Dosage: 3 MG
     Route: 048
     Dates: start: 19860101
  5. NEURONTIN [Concomitant]
     Indication: PAIN
  6. SYNTHROID [Concomitant]
     Indication: HYPOTHYROIDISM
     Dosage: 0.025 MG
     Dates: start: 19950101
  7. HYDROCHLOROTHIAZIDE [Concomitant]
     Indication: OEDEMA
     Dosage: 12.5 MG
     Dates: start: 20000101

REACTIONS (5)
  - FALL [None]
  - DIARRHOEA [None]
  - SYNCOPE [None]
  - DYSPHONIA [None]
  - DRY MOUTH [None]
